FAERS Safety Report 7988922-6 (Version None)
Quarter: 2011Q4

REPORT INFORMATION
  Report Type: 
  Country: None (occurrence: None)
  Receive Date: 20111219
  Receipt Date: 20111212
  Transmission Date: 20120403
  Serious: Yes (Hospitalization, Other)
  Sender: FDA-Public Use
  Company Number: US-ELI_LILLY_AND_COMPANY-US201107006529

PATIENT
  Sex: Male
  Weight: 150.57 kg

DRUGS (14)
  1. EFFEXOR [Concomitant]
  2. DEPAKOTE [Concomitant]
  3. METFORMIN HCL [Concomitant]
     Dosage: 1000 MG, BID
     Route: 048
  4. BYETTA [Suspect]
     Dosage: 10 UG, BID
     Route: 058
     Dates: start: 20070601, end: 20090101
  5. SEROQUEL [Concomitant]
  6. TRICOR [Concomitant]
     Dosage: 145 MG, QD
  7. CADUET [Concomitant]
     Dosage: 1 DF, QD
  8. ALLOPURINOL [Concomitant]
  9. LISINOPRIL [Concomitant]
     Dosage: 40 MG, QD
     Route: 048
  10. TEMAZEPAM [Concomitant]
     Dosage: 30 MG, EACH EVENING
  11. VITAMIN D [Concomitant]
     Dosage: 800 IU, QD
  12. ATENOLOL AND CHLORTHALIDONE [Concomitant]
     Dosage: 1 DF, QD
  13. GLIMEPIRIDE [Concomitant]
     Dosage: 4 MG, BID
     Route: 048
  14. FISH OIL [Concomitant]

REACTIONS (3)
  - RENAL FAILURE CHRONIC [None]
  - PANCREATITIS [None]
  - RENAL FAILURE ACUTE [None]
